FAERS Safety Report 5736409-3 (Version None)
Quarter: 2008Q2

REPORT INFORMATION
  Report Type: 
  Country: None (occurrence: None)
  Receive Date: 20080513
  Receipt Date: 20080512
  Transmission Date: 20081010
  Serious: Yes (Hospitalization)
  Sender: FDA-Public Use
  Company Number: A0727539A

PATIENT
  Age: 34 Year
  Sex: Female

DRUGS (2)
  1. FLOLAN [Suspect]
     Route: 042
  2. UNKNOWN [Concomitant]

REACTIONS (3)
  - EXTRAVASATION [None]
  - INFUSION SITE EXTRAVASATION [None]
  - PALLOR [None]
